FAERS Safety Report 5972794-5 (Version None)
Quarter: 2008Q4

REPORT INFORMATION
  Report Type: 
  Country: None (occurrence: None)
  Receive Date: 20081201
  Receipt Date: 20081120
  Transmission Date: 20090506
  Serious: Yes (Hospitalization)
  Sender: FDA-Public Use
  Company Number: JP-MERCK-0811USA03998

PATIENT
  Sex: Female

DRUGS (2)
  1. PEPCID [Suspect]
     Route: 048
  2. CLARITHROMYCIN [Suspect]
     Route: 065

REACTIONS (1)
  - ELECTROCARDIOGRAM QT PROLONGED [None]
